FAERS Safety Report 9370141 (Version 1)
Quarter: 2013Q2

REPORT INFORMATION
  Report Type: Spontaneous
  Country: US (occurrence: None)
  Receive Date: 20130624
  Receipt Date: 20130624
  Transmission Date: 20140414
  Serious: Yes (Hospitalization)
  Sender: FDA-Public Use
  Company Number: AUR-APL-2013-05061

PATIENT
  Age: 85 Year
  Sex: Female

DRUGS (4)
  1. HYDROCHLOROTHIAZIDE (HYDROCHLOROTHIAZIDE) [Suspect]
     Indication: HYPERTENSION
     Dosage: (12.5 MG, 1 IN 1 D)
     Route: 048
  2. BENICAR [Suspect]
     Indication: HYPERTENSION
     Dosage: 20 MG, 1 IN 1 D)
     Route: 048
     Dates: start: 2013, end: 2013
  3. SYNTHROID [Concomitant]
  4. INSULIN [Concomitant]

REACTIONS (5)
  - Dizziness [None]
  - Gait disturbance [None]
  - Potentiating drug interaction [None]
  - Hypertension [None]
  - Palpitations [None]
